FAERS Safety Report 20136280 (Version 1)
Quarter: 2021Q4

REPORT INFORMATION
  Report Type: Spontaneous
  Country: US (occurrence: None)
  Receive Date: 20211130
  Receipt Date: 20211130
  Transmission Date: 20220303
  Serious: No
  Sender: FDA-Public Use
  Company Number: None

PATIENT
  Age: 71 Year
  Sex: Male
  Weight: 92.99 kg

DRUGS (1)
  1. HIZENTRA [Suspect]
     Active Substance: HUMAN IMMUNOGLOBULIN G
     Dosage: FREQUENCY : WEEKLY;?
     Route: 058

REACTIONS (5)
  - Feeling of body temperature change [None]
  - Parkinson^s disease [None]
  - Poor quality sleep [None]
  - Influenza like illness [None]
  - Hyperhidrosis [None]

NARRATIVE: CASE EVENT DATE: 20211103
